FAERS Safety Report 25970092 (Version 1)
Quarter: 2025Q4

REPORT INFORMATION
  Report Type: Report from Study
  Country: US (occurrence: US)
  Receive Date: 20251028
  Receipt Date: 20251028
  Transmission Date: 20260117
  Serious: Yes (Other)
  Sender: BIOCODEX
  Company Number: US-BIOCODEX2-2025000940

PATIENT
  Age: 20 Year
  Sex: Male
  Weight: 54.4 kg

DRUGS (4)
  1. DIACOMIT [Suspect]
     Active Substance: STIRIPENTOL
     Indication: Lennox-Gastaut syndrome
     Dosage: 500 MG BY MOUTH TWICE DAILY WITH FOOD
     Route: 048
     Dates: start: 20250607
  2. DIACOMIT [Suspect]
     Active Substance: STIRIPENTOL
     Indication: Lennox-Gastaut syndrome
     Dosage: 250MG AND 500MG IN TWO SEPARATE DOSES EACH DAY
     Route: 048
     Dates: start: 20250607
  3. DIACOMIT [Suspect]
     Active Substance: STIRIPENTOL
     Indication: Lennox-Gastaut syndrome
     Dosage: TAKE 500MG AND 750MG BY MOUTH IN TWO SEPARATE DOSES EACH DAY
     Route: 048
     Dates: start: 20250607
  4. ONFI [Concomitant]
     Active Substance: CLOBAZAM

REACTIONS (3)
  - Off label use [Unknown]
  - Hypersomnia [Unknown]
  - Seizure [Unknown]

NARRATIVE: CASE EVENT DATE: 20250607
